FAERS Safety Report 10056659 (Version 1)
Quarter: 2014Q2

REPORT INFORMATION
  Report Type: Spontaneous
  Country: US (occurrence: US)
  Receive Date: 20140403
  Receipt Date: 20140403
  Transmission Date: 20141212
  Serious: No
  Sender: FDA-Public Use
  Company Number: US-009507513-1404USA001079

PATIENT
  Sex: Female
  Weight: 54.88 kg

DRUGS (1)
  1. NEXPLANON [Suspect]
     Dosage: UNK, 68MG/ ONE ROD EVERY THREE YEARS.
     Route: 059
     Dates: start: 2013

REACTIONS (3)
  - Device kink [Unknown]
  - Product quality issue [Unknown]
  - No adverse event [Unknown]
